FAERS Safety Report 17033158 (Version 2)
Quarter: 2019Q4

REPORT INFORMATION
  Report Type: Spontaneous
  Country: US (occurrence: US)
  Receive Date: 20191114
  Receipt Date: 20191202
  Transmission Date: 20200122
  Serious: No
  Sender: FDA-Public Use
  Company Number: US-SA-2019SA305864

PATIENT
  Age: 68 Year
  Sex: Female

DRUGS (2)
  1. PRALUENT [Suspect]
     Active Substance: ALIROCUMAB
     Dosage: 75 MG, OTHER
     Route: 058
     Dates: start: 201911
  2. PRALUENT [Suspect]
     Active Substance: ALIROCUMAB
     Dosage: 75 MG
     Route: 058
     Dates: start: 201910

REACTIONS (7)
  - Arthralgia [Unknown]
  - Back pain [Unknown]
  - Swelling [Unknown]
  - Myalgia [Unknown]
  - Sinus disorder [Unknown]
  - Influenza like illness [Unknown]
  - Eye pain [Unknown]

NARRATIVE: CASE EVENT DATE: 2019
